FAERS Safety Report 17267585 (Version 1)
Quarter: 2020Q1

REPORT INFORMATION
  Report Type: Report from Study
  Country: CA (occurrence: CA)
  Receive Date: 20200114
  Receipt Date: 20200114
  Transmission Date: 20200409
  Serious: Yes (Other)
  Sender: FDA-Public Use
  Company Number: CA-JNJFOC-20191205563

PATIENT
  Age: 71 Year
  Sex: Female

DRUGS (1)
  1. SIMPONI [Suspect]
     Active Substance: GOLIMUMAB
     Indication: ANKYLOSING SPONDYLITIS
     Route: 058
     Dates: start: 20160826

REACTIONS (7)
  - Injection site haemorrhage [Unknown]
  - Pyrexia [Unknown]
  - Muscle contracture [Not Recovered/Not Resolved]
  - Underdose [Unknown]
  - Ankylosing spondylitis [Not Recovered/Not Resolved]
  - Syringe issue [Unknown]
  - Hyperhidrosis [Unknown]

NARRATIVE: CASE EVENT DATE: 20190809
